FAERS Safety Report 10412946 (Version 1)
Quarter: 2014Q2

REPORT INFORMATION
  Report Type: Spontaneous
  Country: US (occurrence: None)
  Receive Date: 20140604
  Receipt Date: 20140604
  Transmission Date: 20141212
  Serious: No
  Sender: FDA-Public Use
  Company Number: 163-POMAL-14050411

PATIENT
  Age: 63 Year
  Sex: Female

DRUGS (5)
  1. POMALYST (POMALIDOMIDE) (4 MILLIGRAM, CAPSULES) [Suspect]
     Indication: PLASMA CELL MYELOMA
     Dosage: 4MG, 21 IN 28 D, PO
     Route: 048
     Dates: start: 201401
  2. CALTRATE (CALCIUM CARBONATE) [Concomitant]
  3. GABAPENTIN [Concomitant]
  4. VITAMIN B1 (THIAMINE HYDROCHLORIDE) [Concomitant]
  5. VITAMIN B12 (CYANCOBALAMIN) [Concomitant]

REACTIONS (1)
  - Alopecia [None]
